FAERS Safety Report 7505313-2 (Version None)
Quarter: 2011Q2

REPORT INFORMATION
  Report Type: 
  Country: None (occurrence: None)
  Receive Date: 20110526
  Receipt Date: 20110520
  Transmission Date: 20111010
  Serious: Yes (Hospitalization, Other)
  Sender: FDA-Public Use
  Company Number: US-AMGEN-USASP2011022836

PATIENT
  Age: 63 Year
  Sex: Female
  Weight: 89 kg

DRUGS (17)
  1. ATENOLOL [Concomitant]
     Dosage: 50 MG, QD
     Route: 048
  2. MAGNESIUM SULFATE [Concomitant]
     Dosage: UNK UNK, QD
     Route: 048
  3. CARBOPLATIN [Concomitant]
  4. PROTONIX [Concomitant]
     Dosage: 40 MG, QD
     Route: 048
  5. NEUPOGEN [Suspect]
     Indication: HAEMATOPOIETIC STEM CELL MOBILISATION
     Dosage: UNK
     Dates: start: 20100101
  6. LOPRESSOR [Concomitant]
     Dosage: 50 MG, BID
     Route: 048
  7. DIFLUCAN [Concomitant]
     Indication: ANTIFUNGAL TREATMENT
     Dosage: 200 MG, BID
     Route: 048
  8. CYCLOPHOSPHAMIDE [Concomitant]
  9. THIOTEPA [Concomitant]
  10. LEVOXYL [Concomitant]
     Indication: HYPOTHYROIDISM
     Dosage: 125 A?G, QD
  11. MOZOBIL [Concomitant]
  12. ALDACTONE [Concomitant]
     Dosage: 50 MG, BID
     Route: 048
  13. NPLATE [Suspect]
     Indication: IDIOPATHIC THROMBOCYTOPENIC PURPURA
     Dosage: UNK UNK, QWK
     Route: 058
     Dates: start: 20110405
  14. LISINOPRIL AND HYDROCHLOROTHIAZIDE [Concomitant]
     Dosage: UNK UNK, QD
     Route: 048
  15. VALTREX [Concomitant]
     Indication: ANTIVIRAL TREATMENT
     Dosage: 500 MG, BID
     Route: 048
  16. LEXAPRO [Concomitant]
     Dosage: 10 MG, QD
     Route: 048
  17. GLIMEPIRIDE [Concomitant]
     Dosage: 4 MG, QD
     Route: 048

REACTIONS (30)
  - NIGHT SWEATS [None]
  - HEADACHE [None]
  - RESPIRATORY FAILURE [None]
  - NAUSEA [None]
  - OROPHARYNGEAL PAIN [None]
  - DYSPNOEA EXERTIONAL [None]
  - CLOSTRIDIUM TEST POSITIVE [None]
  - PULMONARY OEDEMA [None]
  - PLATELET COUNT DECREASED [None]
  - STAPHYLOCOCCAL BACTERAEMIA [None]
  - VARICES OESOPHAGEAL [None]
  - RENAL FAILURE [None]
  - WEIGHT DECREASED [None]
  - CONTUSION [None]
  - COAGULOPATHY [None]
  - PANCYTOPENIA [None]
  - ABDOMINAL PAIN [None]
  - DIARRHOEA [None]
  - OEDEMA PERIPHERAL [None]
  - HERNIA [None]
  - ANXIETY [None]
  - MALAISE [None]
  - DECREASED APPETITE [None]
  - PALLOR [None]
  - FLUID OVERLOAD [None]
  - RECTAL HAEMORRHAGE [None]
  - VOMITING [None]
  - PORTAL HYPERTENSION [None]
  - HEPATIC CIRRHOSIS [None]
  - DIZZINESS POSTURAL [None]
